FAERS Safety Report 16773004 (Version 1)
Quarter: 2019Q3

REPORT INFORMATION
  Report Type: Spontaneous
  Country: US (occurrence: US)
  Receive Date: 20190715
  Receipt Date: 20190715
  Transmission Date: 20191005
  Serious: Yes (Other)
  Sender: FDA-Public Use
  Company Number: None

PATIENT
  Age: 68 Year
  Sex: Male
  Weight: 77.11 kg

DRUGS (12)
  1. COQ10 [Concomitant]
     Active Substance: UBIDECARENONE
  2. FLUTICASONE NASAL SPRAY [Concomitant]
     Active Substance: FLUTICASONE
  3. TRIAMETER [Concomitant]
  4. CENTRUM SILVER VITAMIN [Concomitant]
  5. FLAXSEED [Concomitant]
     Active Substance: FLAX SEED
  6. ZYRTEC [Concomitant]
     Active Substance: CETIRIZINE HYDROCHLORIDE
  7. EQUATE RESTORE PM NIGHTTIME LUBRICANT EYE [Suspect]
     Active Substance: MINERAL OIL\PETROLATUM
     Indication: DRY EYE
     Dosage: ?          QUANTITY:3.5 GRAM;?
     Route: 047
     Dates: start: 20190617, end: 20190707
  8. HEARING AIDS [Concomitant]
  9. LATANOPROST EYE DROPS [Concomitant]
     Active Substance: LATANOPROST
  10. SIMVASTATIN. [Concomitant]
     Active Substance: SIMVASTATIN
  11. PREDNISONE. [Concomitant]
     Active Substance: PREDNISONE
  12. FIBERCON [Concomitant]
     Active Substance: CALCIUM POLYCARBOPHIL

REACTIONS (4)
  - Product quality issue [None]
  - Instillation site pain [None]
  - Eyelid margin crusting [None]
  - Eye discharge [None]

NARRATIVE: CASE EVENT DATE: 20190617
